FAERS Safety Report 23593114 (Version 1)
Quarter: 2024Q1

REPORT INFORMATION
  Report Type: Spontaneous
  Country: CA (occurrence: CA)
  Receive Date: 20240304
  Receipt Date: 20240304
  Transmission Date: 20240410
  Serious: Yes (Death)
  Sender: FDA-Public Use
  Company Number: CA-PFIZER INC-202300278676

PATIENT
  Age: 34 Year
  Sex: Female
  Weight: 77.1 kg

DRUGS (18)
  1. RUXIENCE [Suspect]
     Active Substance: RITUXIMAB-PVVR
     Indication: Encephalitis autoimmune
     Dosage: 1 DF, WEEKLY, 707.625 MG FOR 4 WEEKS DOSE, NOT YET STARTED
     Route: 042
  2. RUXIENCE [Suspect]
     Active Substance: RITUXIMAB-PVVR
     Dosage: 1 DF, DOSAGE INFO: UNKNOWN
     Route: 042
     Dates: start: 2022, end: 2022
  3. RUXIENCE [Suspect]
     Active Substance: RITUXIMAB-PVVR
     Dosage: 2830.50 MG, OVER 4 WEEKS EVERY 6 MONTHS
     Route: 042
  4. RUXIENCE [Suspect]
     Active Substance: RITUXIMAB-PVVR
     Dosage: 710 MG, WEEKLY, X 4 DOSES - EVERY 6 MONTHS
     Route: 042
     Dates: start: 20230921
  5. RUXIENCE [Suspect]
     Active Substance: RITUXIMAB-PVVR
     Dosage: 710 MG, WEEKLY, X 4 DOSES - EVERY 6 MONTHS(DOSAGE ADMINISTERED: 710MG, AFTER ONE WEEK)
     Route: 042
     Dates: start: 20230927
  6. RUXIENCE [Suspect]
     Active Substance: RITUXIMAB-PVVR
     Dosage: 710 MG, WEEKLY, X 4 DOSES - EVERY 6 MONTHS(DOSAGE ADMINISTERED: 710MG, AFTER ONE WEEK)
     Route: 042
     Dates: start: 20230927
  7. RUXIENCE [Suspect]
     Active Substance: RITUXIMAB-PVVR
     Dosage: 710 MG,  2 WEEKS (DAY 15)
     Route: 042
     Dates: start: 20231004
  8. RUXIENCE [Suspect]
     Active Substance: RITUXIMAB-PVVR
     Dosage: 710 MG,  2 WEEKS (DAY 15)
     Route: 042
     Dates: start: 20231004
  9. RUXIENCE [Suspect]
     Active Substance: RITUXIMAB-PVVR
     Dosage: 710 MG,  2 WEEKS (DAY 15)
     Route: 042
     Dates: start: 20231010
  10. RUXIENCE [Suspect]
     Active Substance: RITUXIMAB-PVVR
     Dosage: 710 MG,  2 WEEKS (DAY 15)
     Route: 042
     Dates: start: 20231010
  11. ACETAMINOPHEN [Concomitant]
     Active Substance: ACETAMINOPHEN
     Indication: Premedication
     Dosage: 650 MG
     Dates: start: 20230927, end: 20230927
  12. ACETAMINOPHEN [Concomitant]
     Active Substance: ACETAMINOPHEN
     Dosage: 650 MG
     Dates: start: 20231004, end: 20231004
  13. CITALOPRAM [Concomitant]
     Active Substance: CITALOPRAM HYDROBROMIDE
     Indication: Neuropsychological symptoms
     Dosage: UNK
  14. DIPHENHYDRAMINE [Concomitant]
     Active Substance: DIPHENHYDRAMINE
     Indication: Premedication
     Dosage: 50 MG
     Dates: start: 20230927, end: 20230927
  15. DIPHENHYDRAMINE [Concomitant]
     Active Substance: DIPHENHYDRAMINE
     Dosage: 50 UNK
     Dates: start: 20231004, end: 20231004
  16. LORAZEPAM [Concomitant]
     Active Substance: LORAZEPAM
     Indication: Neuropsychological symptoms
     Dosage: UNK
  17. RITUXIMAB [Concomitant]
     Active Substance: RITUXIMAB
     Dosage: 1 DF, DOSAGE INFO: UNKNOWNSTATUS: DICSONTINUED
     Route: 042
  18. VALPROIC ACID [Concomitant]
     Active Substance: VALPROIC ACID
     Indication: Neuropsychological symptoms
     Dosage: UNK

REACTIONS (5)
  - Death [Fatal]
  - Heart rate increased [Recovered/Resolved]
  - Vomiting [Recovered/Resolved]
  - Drug ineffective for unapproved indication [Unknown]
  - Off label use [Unknown]

NARRATIVE: CASE EVENT DATE: 20231004
